FAERS Safety Report 11026607 (Version 1)
Quarter: 2015Q2

REPORT INFORMATION
  Report Type: Spontaneous
  Country: US (occurrence: US)
  Receive Date: 20150414
  Receipt Date: 20150414
  Transmission Date: 20150821
  Serious: No
  Sender: FDA-Public Use
  Company Number: US-GALDERMA-US15001395

PATIENT

DRUGS (2)
  1. CETAPHIL [Suspect]
     Active Substance: AVOBENZONE\OCTOCRYLENE\TRICLOSAN
  2. SOOLANTRA [Suspect]
     Active Substance: IVERMECTIN

REACTIONS (1)
  - Rash [Unknown]
